FAERS Safety Report 10815991 (Version 1)
Quarter: 2015Q1

REPORT INFORMATION
  Report Type: Report from Study
  Country: US (occurrence: US)
  Receive Date: 20150218
  Receipt Date: 20150218
  Transmission Date: 20150721
  Serious: No
  Sender: FDA-Public Use
  Company Number: US-ABBVIE-14K-163-1282065-00

PATIENT
  Age: 52 Year
  Sex: Female

DRUGS (6)
  1. FLURBIPROFEN. [Concomitant]
     Active Substance: FLURBIPROFEN
     Indication: RHEUMATOID ARTHRITIS
  2. NEXIUM [Concomitant]
     Active Substance: ESOMEPRAZOLE MAGNESIUM
     Indication: GASTROOESOPHAGEAL REFLUX DISEASE
  3. FLUOXETINE [Concomitant]
     Active Substance: FLUOXETINE\FLUOXETINE HYDROCHLORIDE
     Indication: NERVOUSNESS
     Dosage: AT NIGHT
  4. HUMIRA [Suspect]
     Active Substance: ADALIMUMAB
     Indication: RHEUMATOID ARTHRITIS
     Dates: start: 20140820
  5. NEXIUM [Concomitant]
     Active Substance: ESOMEPRAZOLE MAGNESIUM
     Indication: GASTRIC DISORDER
  6. LISINOPRIL. [Concomitant]
     Active Substance: LISINOPRIL
     Indication: HYPERTENSION

REACTIONS (7)
  - Arthralgia [Recovering/Resolving]
  - Dysphonia [Unknown]
  - Joint crepitation [Recovering/Resolving]
  - Cough [Unknown]
  - Injection site pain [Unknown]
  - Chest discomfort [Recovered/Resolved]
  - Rhinorrhoea [Unknown]

NARRATIVE: CASE EVENT DATE: 2014
